FAERS Safety Report 12212080 (Version 1)
Quarter: 2016Q1

REPORT INFORMATION
  Report Type: Spontaneous
  Country: US (occurrence: US)
  Receive Date: 20160325
  Receipt Date: 20160325
  Transmission Date: 20160526
  Serious: Yes (Hospitalization, Other)
  Sender: FDA-Public Use
  Company Number: US-ASTRAZENECA-2016SE31411

PATIENT
  Sex: Female

DRUGS (9)
  1. RANEXA [Concomitant]
     Active Substance: RANOLAZINE
  2. LASIX [Concomitant]
     Active Substance: FUROSEMIDE
  3. ZETIA [Concomitant]
     Active Substance: EZETIMIBE
  4. FISH OIL [Concomitant]
     Active Substance: FISH OIL
  5. ASA [Concomitant]
     Active Substance: ASPIRIN
  6. LIVALO [Concomitant]
     Active Substance: PITAVASTATIN CALCIUM
  7. METOPROLOL. [Concomitant]
     Active Substance: METOPROLOL
  8. CRESTOR [Suspect]
     Active Substance: ROSUVASTATIN CALCIUM
     Indication: BLOOD CHOLESTEROL INCREASED
     Route: 048
     Dates: start: 20160311, end: 20160312
  9. POTASSIUM CHLORIDE. [Concomitant]
     Active Substance: POTASSIUM CHLORIDE

REACTIONS (8)
  - Constipation [Unknown]
  - Dizziness [Unknown]
  - Pyrexia [Unknown]
  - Confusional state [Unknown]
  - Abdominal pain upper [Unknown]
  - Hyperhidrosis [Unknown]
  - Drug hypersensitivity [Unknown]
  - Headache [Unknown]
